FAERS Safety Report 19691056 (Version 2)
Quarter: 2021Q4

REPORT INFORMATION
  Report Type: Spontaneous
  Country: CH (occurrence: IN)
  Receive Date: 20210812
  Receipt Date: 20211004
  Transmission Date: 20220304
  Serious: Yes (Other)
  Sender: FDA-Public Use
  Company Number: IN-ASTELLAS-2021US029904

PATIENT
  Age: 33 Year
  Sex: Male

DRUGS (3)
  1. ISAVUCONAZOLE [Suspect]
     Active Substance: ISAVUCONAZOLE
     Indication: Product used for unknown indication
     Dosage: 600 MG, ONCE DAILY (100 MG LOADING DOSE OF SIX CAPSULES FOR TWO DAYS)
     Route: 048
  2. ISAVUCONAZOLE [Suspect]
     Active Substance: ISAVUCONAZOLE
     Dosage: 200 MG, ONCE DAILY (FOR THREE WEEKS)
     Route: 048
     Dates: start: 20210722
  3. Potklor [Concomitant]
     Indication: Product used for unknown indication
     Dosage: 15 ML, THRICE DAILY (5 DAYS)
     Route: 065

REACTIONS (2)
  - Mucormycosis [Unknown]
  - Sinusitis [Unknown]
